FAERS Safety Report 23222800 (Version 2)
Quarter: 2024Q1

REPORT INFORMATION
  Report Type: Report from Study
  Country: BR (occurrence: BR)
  Receive Date: 20231123
  Receipt Date: 20240122
  Transmission Date: 20240410
  Serious: Yes (Hospitalization)
  Sender: FDA-Public Use
  Company Number: BR-TEVA-2023-BR-2947835

PATIENT
  Age: 44 Year
  Weight: 64 kg

DRUGS (4)
  1. LENALIDOMIDE [Suspect]
     Active Substance: LENALIDOMIDE
     Indication: Follicular lymphoma
     Dosage: DAILY DOSE(S): 20 MG CYCLE 1-12, DAY 1 TO 21, EVERY 1 DAYS
     Route: 048
     Dates: start: 20231030, end: 20231110
  2. LENALIDOMIDE [Suspect]
     Active Substance: LENALIDOMIDE
     Indication: Follicular lymphoma
     Dosage: DAILY DOSE(S): 20 MG CYCLE 1-12, DAY 1 TO 21, EVERY 1 DAYS
     Route: 048
  3. ALLOPURINOL [Concomitant]
     Active Substance: ALLOPURINOL
     Indication: Prophylaxis
     Dosage: DOSAGE TEXT: DOSE(S): 300 MG, EVERY 1 DAYS
     Dates: start: 20231027
  4. BACTRIM [Concomitant]
     Active Substance: SULFAMETHOXAZOLE\TRIMETHOPRIM
     Indication: Prophylaxis
     Dosage: TIME INTERVAL: 0.333 WEEKS: DOSAGE TEXT: 800/160 MG
     Dates: start: 20231030

REACTIONS (4)
  - Aspartate aminotransferase increased [Recovered/Resolved]
  - Tumour flare [Not Recovered/Not Resolved]
  - Cytokine release syndrome [Not Recovered/Not Resolved]
  - Neutropenia [Recovered/Resolved]

NARRATIVE: CASE EVENT DATE: 20231105
